FAERS Safety Report 21766686 (Version 2)
Quarter: 2023Q1

REPORT INFORMATION
  Report Type: Spontaneous
  Country: US (occurrence: US)
  Receive Date: 20221222
  Receipt Date: 20230119
  Transmission Date: 20230418
  Serious: No
  Sender: FDA-Public Use
  Company Number: US-PFIZER INC-202201383990

PATIENT
  Age: 80 Year
  Sex: Female
  Weight: 58.1 kg

DRUGS (1)
  1. ZIRABEV [Suspect]
     Active Substance: BEVACIZUMAB-BVZR
     Indication: Malignant neoplasm of renal pelvis
     Dosage: UNK
     Dates: start: 20221010

REACTIONS (1)
  - Protein urine present [Unknown]
